FAERS Safety Report 15892155 (Version 1)
Quarter: 2019Q1

REPORT INFORMATION
  Report Type: Report from Study
  Country: US (occurrence: US)
  Receive Date: 20190130
  Receipt Date: 20190130
  Transmission Date: 20190417
  Serious: No
  Sender: FDA-Public Use
  Company Number: US-EXELIXIS-CABO-18014820

PATIENT
  Age: 76 Year
  Sex: Male

DRUGS (1)
  1. CABOMETYX [Suspect]
     Active Substance: CABOZANTINIB S-MALATE
     Indication: RENAL CANCER
     Dosage: 40 MG, QD 10D ON/ 4D OFF
     Dates: start: 20170630

REACTIONS (14)
  - Proteinuria [Unknown]
  - Red cell distribution width increased [Unknown]
  - Palmar-plantar erythrodysaesthesia syndrome [Unknown]
  - Nausea [Unknown]
  - Red blood cell count decreased [Unknown]
  - Decreased activity [Unknown]
  - Hypothyroidism [Unknown]
  - Haematocrit decreased [Unknown]
  - Diarrhoea [Unknown]
  - Fatigue [Unknown]
  - Chronic kidney disease [Unknown]
  - Hypertension [Unknown]
  - Haemoglobin decreased [Unknown]
  - Blood creatinine increased [Unknown]
